FAERS Safety Report 21713048 (Version 1)
Quarter: 2022Q4

REPORT INFORMATION
  Report Type: Spontaneous
  Country: US (occurrence: None)
  Receive Date: 20221209
  Receipt Date: 20221209
  Transmission Date: 20230113
  Serious: Yes (Death)
  Sender: FDA-Public Use
  Company Number: None

PATIENT
  Age: 82 Year
  Sex: Male

DRUGS (3)
  1. DEVICE [Suspect]
     Active Substance: DEVICE
     Dates: start: 20221115, end: 20221115
  2. VASOPRESSIN [Suspect]
     Active Substance: VASOPRESSIN
  3. LEVOPHED [Suspect]
     Active Substance: NOREPINEPHRINE BITARTRATE

REACTIONS (8)
  - Jaundice [None]
  - Hypoxia [None]
  - General physical health deterioration [None]
  - Hypotension [None]
  - Bradycardia [None]
  - Device connection issue [None]
  - Device information output issue [None]
  - Cardiac arrest [None]

NARRATIVE: CASE EVENT DATE: 20221115
